FAERS Safety Report 4617067-8 (Version None)
Quarter: 2005Q1

REPORT INFORMATION
  Report Type: 
  Country: None (occurrence: None)
  Receive Date: 20050323
  Receipt Date: 20050314
  Transmission Date: 20050727
  Serious: Yes (Other)
  Sender: FDA-Public Use
  Company Number: JP-JNJFOC-20041200339

PATIENT
  Sex: Male

DRUGS (4)
  1. ITRIZOLE [Suspect]
     Indication: TINEA PEDIS
     Route: 049
     Dates: start: 20040204, end: 20041113
  2. DIGOXIN [Concomitant]
     Indication: ATRIAL FIBRILLATION
     Route: 049
  3. ASPIRIN [Concomitant]
     Indication: ATRIAL FIBRILLATION
     Route: 049
  4. BIFONAZOLE [Concomitant]
     Indication: TINEA PEDIS
     Route: 061

REACTIONS (5)
  - CARDIAC FAILURE [None]
  - GLUCOSE URINE PRESENT [None]
  - HYPERGLYCAEMIA [None]
  - HYPERTROPHY BREAST [None]
  - NEPHRITIS AUTOIMMUNE [None]
